FAERS Safety Report 7206807-X (Version None)
Quarter: 2010Q4

REPORT INFORMATION
  Report Type: 
  Country: None (occurrence: None)
  Receive Date: 20101217
  Receipt Date: 20101209
  Transmission Date: 20110411
  Serious: Yes (Hospitalization, Other)
  Sender: FDA-Public Use
  Company Number: WAES 1011USA01374

PATIENT
  Age: 46 Year
  Sex: Male
  Weight: 73.4827 kg

DRUGS (9)
  1. TAB RALTEGRAVIR 400 MG [Suspect]
     Indication: HIV INFECTION
     Dosage: SEE IMAGE, PO
     Route: 048
     Dates: start: 20101008, end: 20101106
  2. TAB RALTEGRAVIR 400 MG [Suspect]
     Indication: HIV INFECTION
     Dosage: SEE IMAGE, PO
     Route: 048
     Dates: start: 20101109
  3. TAB DARUNAVIR, 400 MG [Suspect]
     Indication: HIV INFECTION
     Dosage: 800 MG DAILY, PO
     Route: 048
     Dates: start: 20101008, end: 20101106
  4. TAB DARUNAVIR, 400 MG [Suspect]
     Indication: HIV INFECTION
     Dosage: 800 MG DAILY, PO
     Route: 048
     Dates: start: 20101109
  5. RITONAVIR [Suspect]
     Indication: HIV INFECTION
     Dosage: 100 MG DAILY, PO
     Route: 048
     Dates: start: 20101008, end: 20101106
  6. RITONAVIR [Suspect]
     Indication: HIV INFECTION
     Dosage: 100 MG DAILY, PO
     Route: 048
     Dates: start: 20101109
  7. ACETAMINOPHEN [Concomitant]
  8. NYSTATIN [Concomitant]
  9. SULFAMETHOXAZOLE + TRIMETHOPRIM [Concomitant]

REACTIONS (14)
  - ABDOMINAL PAIN [None]
  - ACUTE SINUSITIS [None]
  - AORTIC VALVE INCOMPETENCE [None]
  - BLOOD LACTATE DEHYDROGENASE INCREASED [None]
  - COELIAC DISEASE [None]
  - DIARRHOEA [None]
  - HAEMORRHOIDS [None]
  - HEPATOSPLENOMEGALY [None]
  - LUNG NEOPLASM [None]
  - LYMPHADENOPATHY [None]
  - MITRAL VALVE INCOMPETENCE [None]
  - PULMONARY VALVE INCOMPETENCE [None]
  - PYREXIA [None]
  - TRICUSPID VALVE INCOMPETENCE [None]
